FAERS Safety Report 17395606 (Version 1)
Quarter: 2020Q1

REPORT INFORMATION
  Report Type: Spontaneous
  Country: US (occurrence: US)
  Receive Date: 20200206
  Receipt Date: 20200206
  Transmission Date: 20200409
  Serious: Yes (Disabling)
  Sender: FDA-Public Use
  Company Number: None

PATIENT
  Age: 60 Year
  Weight: 70 kg

DRUGS (1)
  1. PACLITAXEL INJECTION [Suspect]
     Active Substance: PACLITAXEL
     Route: 042
     Dates: start: 20200101, end: 20200131

REACTIONS (1)
  - Drug hypersensitivity [None]

NARRATIVE: CASE EVENT DATE: 20200106
